FAERS Safety Report 6992385-7 (Version None)
Quarter: 2010Q3

REPORT INFORMATION
  Report Type: 
  Country: None (occurrence: None)
  Receive Date: 20100917
  Receipt Date: 20100913
  Transmission Date: 20110219
  Serious: Yes (Death, Hospitalization, Other)
  Sender: FDA-Public Use
  Company Number: GB-SANOFI-AVENTIS-2010SA055128

PATIENT
  Age: 79 Year
  Sex: Female

DRUGS (6)
  1. TAXOTERE [Suspect]
     Route: 051
     Dates: start: 20100723, end: 20100723
  2. DALTEPARIN SODIUM [Suspect]
     Route: 065
     Dates: start: 20090914, end: 20100228
  3. CODEINE PHOSPHATE [Concomitant]
     Route: 048
  4. ATORVASTATIN [Concomitant]
     Route: 048
  5. LANSOPRAZOLE [Concomitant]
     Route: 048
  6. BISOPROLOL FUMARATE [Concomitant]
     Route: 048

REACTIONS (3)
  - DEATH [None]
  - DIARRHOEA [None]
  - NEUTROPENIC SEPSIS [None]
